FAERS Safety Report 23328191 (Version 1)
Quarter: 2023Q4

REPORT INFORMATION
  Report Type: Spontaneous
  Country: DE (occurrence: DE)
  Receive Date: 20231221
  Receipt Date: 20231221
  Transmission Date: 20240110
  Serious: Yes (Other)
  Sender: FDA-Public Use
  Company Number: DE-DCGMA-23202393

PATIENT
  Age: 81 Year
  Sex: Female
  Weight: 52 kg

DRUGS (2)
  1. PEMBROLIZUMAB [Suspect]
     Active Substance: PEMBROLIZUMAB
     Indication: Colon cancer
     Dosage: 2X APPLICATION
     Route: 042
     Dates: start: 20230926
  2. METAMIZOLE [Concomitant]
     Active Substance: METAMIZOLE
     Dosage: 1000 MILLIGRAM, QW
     Route: 048

REACTIONS (6)
  - Hypoglossal nerve paresis [Unknown]
  - General physical health deterioration [Unknown]
  - Paresis [Unknown]
  - Facial paresis [Unknown]
  - Neuritis cranial [Unknown]
  - IIIrd nerve paresis [Unknown]

NARRATIVE: CASE EVENT DATE: 20231025
